FAERS Safety Report 7362992-0 (Version None)
Quarter: 2011Q1

REPORT INFORMATION
  Report Type: 
  Country: None (occurrence: None)
  Receive Date: 20110321
  Receipt Date: 20110311
  Transmission Date: 20110831
  Serious: Yes (Hospitalization)
  Sender: FDA-Public Use
  Company Number: US-PFIZER INC-2006000858

PATIENT
  Sex: Male

DRUGS (6)
  1. BEXTRA [Concomitant]
     Dosage: UNK
     Dates: start: 20040101
  2. SYNTHROID [Concomitant]
     Dosage: UNK
  3. PRILOSEC [Concomitant]
     Dosage: UNK
  4. NEURONTIN [Suspect]
     Indication: COMPLEX REGIONAL PAIN SYNDROME
     Dosage: 100 MG, 3X/DAY
     Route: 048
     Dates: start: 20040901
  5. NEURONTIN [Suspect]
     Indication: PAIN
  6. LIDODERM [Concomitant]
     Dosage: UNK
     Route: 062
     Dates: start: 20040101

REACTIONS (6)
  - IMPAIRED DRIVING ABILITY [None]
  - PAIN [None]
  - DISORIENTATION [None]
  - DIZZINESS [None]
  - CONVULSION [None]
  - CONFUSIONAL STATE [None]
